FAERS Safety Report 22118695 (Version 1)
Quarter: 2023Q1

REPORT INFORMATION
  Report Type: Spontaneous
  Country: US (occurrence: US)
  Receive Date: 20230321
  Receipt Date: 20230321
  Transmission Date: 20230417
  Serious: Yes (Death)
  Sender: FDA-Public Use
  Company Number: US-ADC THERAPEUTICS B.V-ADC-2023-000089

PATIENT
  Sex: Male

DRUGS (1)
  1. ZYNLONTA [Suspect]
     Active Substance: LONCASTUXIMAB TESIRINE-LPYL
     Indication: Diffuse large B-cell lymphoma
     Dosage: UNK
     Dates: start: 20220902, end: 20220902

REACTIONS (3)
  - Death [Fatal]
  - Asthenia [Unknown]
  - Nodule [Unknown]

NARRATIVE: CASE EVENT DATE: 20220920
